FAERS Safety Report 15158563 (Version 2)
Quarter: 2019Q1

REPORT INFORMATION
  Report Type: Report from Study
  Country: IT (occurrence: IT)
  Receive Date: 20180718
  Receipt Date: 20190215
  Transmission Date: 20190417
  Serious: Yes (Other)
  Sender: FDA-Public Use
  Company Number: IT-MYLANLABS-2018M1051366

PATIENT
  Sex: Male

DRUGS (3)
  1. MESALAZINE [Suspect]
     Active Substance: MESALAMINE
     Indication: CROHN^S DISEASE
     Dosage: UNK
     Route: 048
     Dates: start: 2014, end: 20180213
  2. INFLIXIMAB [Suspect]
     Active Substance: INFLIXIMAB
     Indication: INFLAMMATORY BOWEL DISEASE
     Dosage: 400 MILLIGRAM, CYCLE(400 MG, EVERY 8 WEEKS)
     Route: 042
     Dates: start: 20160224, end: 20171219
  3. MESALAZINE [Suspect]
     Active Substance: MESALAMINE
     Indication: PRODUCT USED FOR UNKNOWN INDICATION
     Dosage: UNK
     Route: 061
     Dates: start: 2014, end: 20180213

REACTIONS (2)
  - Bladder disorder [Recovered/Resolved with Sequelae]
  - Renal failure [Recovered/Resolved]

NARRATIVE: CASE EVENT DATE: 20180129
